FAERS Safety Report 23760690 (Version 2)
Quarter: 2024Q3

REPORT INFORMATION
  Report Type: Spontaneous
  Country: JP (occurrence: JP)
  Receive Date: 20240419
  Receipt Date: 20240829
  Transmission Date: 20241017
  Serious: Yes (Other)
  Sender: TAKEDA
  Company Number: JP-TAKEDA-2024TJP005528

PATIENT
  Age: 7 Decade
  Sex: Female

DRUGS (2)
  1. ALUNBRIG [Suspect]
     Active Substance: BRIGATINIB
     Indication: Non-small cell lung cancer
     Dosage: UNK
     Route: 048
  2. ALUNBRIG [Suspect]
     Active Substance: BRIGATINIB
     Dosage: 120 MILLIGRAM
     Route: 048

REACTIONS (1)
  - Pleural effusion [Recovered/Resolved]
